FAERS Safety Report 16588836 (Version 3)
Quarter: 2019Q3

REPORT INFORMATION
  Report Type: Spontaneous
  Country: US (occurrence: US)
  Receive Date: 20190718
  Receipt Date: 20190726
  Transmission Date: 20191004
  Serious: Yes (Life-Threatening, Other)
  Sender: FDA-Public Use
  Company Number: US-CONCORDIA PHARMACEUTICALS INC.-GSH201907-001673

PATIENT
  Age: 22 Year
  Sex: Female
  Weight: 45.13 kg

DRUGS (7)
  1. PLAQUENIL [Suspect]
     Active Substance: HYDROXYCHLOROQUINE SULFATE
     Indication: DERMATOMYOSITIS
     Route: 048
  2. FLUOCINONIDE ACETONIDE [Concomitant]
     Indication: DERMATOMYOSITIS
     Dosage: APPLY TO SCALP DAILY
     Route: 061
  3. METHOTREXATE. [Suspect]
     Active Substance: METHOTREXATE
     Indication: DERMATOMYOSITIS
     Route: 048
  4. HYDROCORTISONE BUTYRATE. [Concomitant]
     Active Substance: HYDROCORTISONE BUTYRATE
     Indication: DERMATOMYOSITIS
     Dosage: APPLY TO ALL AFFECTED AREAS OF THE FACE DAILY
     Route: 061
  5. FOLATE [Concomitant]
     Active Substance: FOLATE SODIUM
     Indication: DERMATOMYOSITIS
     Route: 048
  6. TRIAMCINOLONE ACETONIDE LOTION [Concomitant]
     Indication: DERMATOMYOSITIS
     Dosage: APPLY TO THE AFFECTED SKIN OR THE TRUNK DAILY
     Route: 061
  7. PREDNISONE. [Concomitant]
     Active Substance: PREDNISONE
     Indication: DERMATOMYOSITIS
     Route: 048

REACTIONS (3)
  - Off label use [Unknown]
  - Pancytopenia [Unknown]
  - Toxicity to various agents [Unknown]
